FAERS Safety Report 7251230-5 (Version None)
Quarter: 2011Q1

REPORT INFORMATION
  Report Type: 
  Country: None (occurrence: None)
  Receive Date: 20110128
  Receipt Date: 20110124
  Transmission Date: 20110831
  Serious: Yes (Hospitalization)
  Sender: FDA-Public Use
  Company Number: US-B.I. PHARMACEUTICALS,INC./RIDGEFIELD-2010-BP-13675BP

PATIENT
  Age: 79 Year
  Sex: Male

DRUGS (8)
  1. ACETYLCYSTEINE [Concomitant]
  2. CARDIZEM CD [Concomitant]
  3. SIMVASTATIN [Concomitant]
  4. PRADAXA [Suspect]
     Dosage: 300 MG
  5. ZETIA [Concomitant]
  6. IMDUR [Concomitant]
  7. HEPARIN [Concomitant]
     Route: 042
  8. ASPIRIN [Concomitant]

REACTIONS (5)
  - CHEST PAIN [None]
  - SLEEP DISORDER [None]
  - PAIN [None]
  - PULMONARY EMBOLISM [None]
  - DYSPNOEA [None]
